FAERS Safety Report 9019742 (Version 1)
Quarter: 2013Q1

REPORT INFORMATION
  Report Type: Spontaneous
  Country: US (occurrence: US)
  Receive Date: 20130118
  Receipt Date: 20130118
  Transmission Date: 20140127
  Serious: Yes (Other)
  Sender: FDA-Public Use
  Company Number: US-JNJFOC-20130107792

PATIENT
  Age: 47 Year
  Sex: Male

DRUGS (5)
  1. ETRAVIRINE [Suspect]
     Indication: ANTIVIRAL TREATMENT
     Route: 065
     Dates: start: 200707
  2. RALTEGRAVIR [Suspect]
     Indication: ANTIVIRAL TREATMENT
     Route: 065
     Dates: start: 200707
  3. TENOFOVIR [Suspect]
     Indication: ANTIVIRAL TREATMENT
     Route: 065
     Dates: start: 200707
  4. EMTRICITABINE [Suspect]
     Indication: ANTIVIRAL TREATMENT
     Route: 065
     Dates: start: 200707
  5. ZIDOVUDINE [Suspect]
     Indication: ANTIVIRAL TREATMENT
     Route: 065
     Dates: start: 200707

REACTIONS (1)
  - Diffuse large B-cell lymphoma [Unknown]
